FAERS Safety Report 4376676-4 (Version None)
Quarter: 2004Q2

REPORT INFORMATION
  Report Type: 
  Country: None (occurrence: None)
  Receive Date: 20040608
  Receipt Date: 20040526
  Transmission Date: 20050107
  Serious: No
  Sender: FDA-Public Use
  Company Number: 04P-163-0256375-00

PATIENT
  Age: 79 Year
  Sex: Male
  Weight: 74.3899 kg

DRUGS (13)
  1. HUMIRA [Suspect]
     Indication: RHEUMATOID ARTHRITIS
     Dosage: 40 MG, 1 IN 2 WK, SUBCUTANEOUS
     Route: 058
     Dates: start: 20030807, end: 20040401
  2. METHOTREXATE SODIUM [Concomitant]
  3. CALCITONIN-SALMON [Concomitant]
  4. PREDNISOLONE [Concomitant]
  5. WARFARIN SODIUM [Concomitant]
  6. ATENOLOL [Concomitant]
  7. GABAPENTIN [Concomitant]
  8. CALCIUM CARBONATE [Concomitant]
  9. LANSOPRAZOLE [Concomitant]
  10. OXYBUTYNIN HYDROCHLORIDE [Concomitant]
  11. FOLIC ACID [Concomitant]
  12. MULTIVITAMIN [Concomitant]
  13. TEMAZEPAM [Concomitant]

REACTIONS (2)
  - PROTEIN TOTAL DECREASED [None]
  - SKIN CANCER [None]
